FAERS Safety Report 24595929 (Version 2)
Quarter: 2025Q3

REPORT INFORMATION
  Report Type: Spontaneous
  Country: PH (occurrence: PH)
  Receive Date: 20241109
  Receipt Date: 20250809
  Transmission Date: 20251020
  Serious: Yes (Death, Other)
  Sender: ALEXION PHARMACEUTICALS
  Company Number: PH-AstraZeneca-CH-00734602A

PATIENT
  Age: 55 Year
  Sex: Female

DRUGS (1)
  1. IMFINZI [Suspect]
     Active Substance: DURVALUMAB
     Indication: Ovarian cancer
     Dates: start: 20240729, end: 20240926

REACTIONS (1)
  - Death [Fatal]

NARRATIVE: CASE EVENT DATE: 20241018
